FAERS Safety Report 8758438 (Version 1)
Quarter: 2012Q4

REPORT INFORMATION
  Report Type: Spontaneous
  Country: US (occurrence: None)
  Receive Date: 20120828
  Receipt Date: 20120828
  Transmission Date: 20130627
  Serious: Yes (Other)
  Sender: FDA-Public Use
  Company Number: None

PATIENT
  Age: 33 Year
  Sex: Female
  Weight: 83.92 kg

DRUGS (1)
  1. LEVOTHYROXINE [Suspect]
     Indication: HYPOTHYROIDISM
     Route: 048
     Dates: start: 20120101, end: 20120801

REACTIONS (8)
  - Palpitations [None]
  - Dry skin [None]
  - Rash [None]
  - Acne [None]
  - Skin exfoliation [None]
  - Alopecia [None]
  - Weight increased [None]
  - Drug ineffective [None]
